FAERS Safety Report 13342423 (Version 1)
Quarter: 2017Q1

REPORT INFORMATION
  Report Type: Spontaneous
  Country: US (occurrence: US)
  Receive Date: 20170316
  Receipt Date: 20170316
  Transmission Date: 20170428
  Serious: No
  Sender: FDA-Public Use
  Company Number: US-WARNER CHILCOTT, LLC-1064300

PATIENT
  Age: 54 Year
  Sex: Female

DRUGS (1)
  1. DELZICOL [Suspect]
     Active Substance: MESALAMINE
     Indication: COLITIS ULCERATIVE
     Route: 048

REACTIONS (2)
  - Drug ineffective [Not Recovered/Not Resolved]
  - Faeces soft [Not Recovered/Not Resolved]

NARRATIVE: CASE EVENT DATE: 20160908
